FAERS Safety Report 4596966-X (Version None)
Quarter: 2005Q1

REPORT INFORMATION
  Report Type: 
  Country: None (occurrence: None)
  Receive Date: 20050302
  Receipt Date: 20050221
  Transmission Date: 20050727
  Serious: Yes (Other)
  Sender: FDA-Public Use
  Company Number: IE-ABBOTT-05P-229-0291631-00

PATIENT
  Age: 76 Year
  Sex: Female

DRUGS (1)
  1. KLACID LA [Suspect]
     Indication: DRUG USE FOR UNKNOWN INDICATION
     Route: 048
     Dates: start: 20041230, end: 20050106

REACTIONS (1)
  - RENAL IMPAIRMENT [None]
